FAERS Safety Report 10174264 (Version 1)
Quarter: 2014Q2

REPORT INFORMATION
  Report Type: Spontaneous
  Country: US (occurrence: None)
  Receive Date: 20140514
  Receipt Date: 20140514
  Transmission Date: 20141212
  Serious: No
  Sender: FDA-Public Use
  Company Number: None

PATIENT
  Age: 76 Year
  Sex: Male
  Weight: 88.7 kg

DRUGS (2)
  1. RIVAROXABAN [Suspect]
     Indication: DEEP VEIN THROMBOSIS
     Route: 048
     Dates: start: 20130401, end: 20140121
  2. ASPIRIN [Suspect]
     Dates: start: 20050101

REACTIONS (3)
  - Rectal haemorrhage [None]
  - Haemoglobin decreased [None]
  - Haemorrhage [None]
